FAERS Safety Report 21400704 (Version 4)
Quarter: 2022Q4

REPORT INFORMATION
  Report Type: Report from Study
  Country: US (occurrence: US)
  Receive Date: 20221003
  Receipt Date: 20221116
  Transmission Date: 20230113
  Serious: No
  Sender: FDA-Public Use
  Company Number: US-KYOWAKIRIN-2022BKK015243

PATIENT

DRUGS (2)
  1. CRYSVITA [Suspect]
     Active Substance: BUROSUMAB-TWZA
     Indication: Hereditary hypophosphataemic rickets
     Dosage: 20 MG, 1X/2 , UNDER THE SKIN
     Route: 058
     Dates: start: 20220812
  2. CRYSVITA [Suspect]
     Active Substance: BUROSUMAB-TWZA
     Indication: Hereditary hypophosphataemic rickets
     Dosage: 20 MG, 1X/2 WEEKS
     Route: 065
     Dates: start: 20220812

REACTIONS (9)
  - Muscular weakness [Unknown]
  - Respiratory syncytial virus infection [Recovered/Resolved]
  - Anxiety [Recovering/Resolving]
  - Influenza like illness [Unknown]
  - Arthralgia [Unknown]
  - Injection site erythema [Unknown]
  - Headache [Unknown]
  - Bone pain [Recovering/Resolving]
  - Illness [Unknown]
